FAERS Safety Report 14693543 (Version 1)
Quarter: 2018Q1

REPORT INFORMATION
  Report Type: Spontaneous
  Country: DE (occurrence: DE)
  Receive Date: 20180329
  Receipt Date: 20180329
  Transmission Date: 20180509
  Serious: Yes (Hospitalization, Other)
  Sender: FDA-Public Use
  Company Number: DE-DRREDDYS-GER/GER/18/0097251

PATIENT
  Age: 38 Year
  Sex: Female
  Weight: 64 kg

DRUGS (11)
  1. IBUPROFEN. [Suspect]
     Active Substance: IBUPROFEN
     Indication: DYSMENORRHOEA
     Route: 048
     Dates: start: 20161024, end: 20170123
  2. ESMYA [Suspect]
     Active Substance: ULIPRISTAL ACETATE
     Indication: DYSMENORRHOEA
     Route: 048
     Dates: start: 20161101, end: 20170123
  3. ESMYA [Suspect]
     Active Substance: ULIPRISTAL ACETATE
     Indication: UTERINE LEIOMYOMA
  4. ORTOTON [Concomitant]
     Indication: HYPOTONIA
     Dosage: AT THE EVENING
     Route: 048
     Dates: end: 20170123
  5. IBUPROFEN. [Suspect]
     Active Substance: IBUPROFEN
     Indication: EPICONDYLITIS
  6. KORODIN [Concomitant]
     Active Substance: CAMPHOR (SYNTHETIC)\MENTHOL
     Indication: FATIGUE
     Dates: start: 20170120, end: 20170122
  7. IBUPROFEN. [Suspect]
     Active Substance: IBUPROFEN
     Indication: BACK PAIN
  8. CARMETHIN [Concomitant]
     Indication: DYSPEPSIA
  9. PANTOPRAZOLE [Concomitant]
     Active Substance: PANTOPRAZOLE
     Indication: PROPHYLAXIS AGAINST GASTROINTESTINAL ULCER
     Dosage: AT THE MORNING
     Route: 048
     Dates: end: 20170123
  10. KORODIN [Concomitant]
     Active Substance: CAMPHOR (SYNTHETIC)\MENTHOL
     Indication: EXERCISE TOLERANCE DECREASED
  11. NOVALGIN (METAMIZOLE SODIUM) [Concomitant]
     Active Substance: METAMIZOLE SODIUM
     Indication: PRODUCT USED FOR UNKNOWN INDICATION
     Dates: start: 20161230, end: 20170123

REACTIONS (11)
  - Acute hepatic failure [Recovered/Resolved]
  - Fallopian tube cyst [Recovered/Resolved]
  - Influenza [Recovered/Resolved]
  - Constipation [Recovered/Resolved]
  - Renal cyst [Recovered/Resolved]
  - Blood urine [Recovered/Resolved]
  - Gastrooesophageal reflux disease [Recovered/Resolved]
  - Hepatic cyst [Recovered/Resolved]
  - Ovarian cyst [Recovered/Resolved]
  - Drug-induced liver injury [Recovered/Resolved]
  - Autoimmune hepatitis [Recovered/Resolved]

NARRATIVE: CASE EVENT DATE: 20161201
